FAERS Safety Report 18725528 (Version 1)
Quarter: 2021Q1

REPORT INFORMATION
  Report Type: Spontaneous
  Country: JP (occurrence: JP)
  Receive Date: 20210111
  Receipt Date: 20210111
  Transmission Date: 20210419
  Serious: Yes (Other)
  Sender: FDA-Public Use
  Company Number: JP-PFIZER INC-2021008681

PATIENT

DRUGS (1)
  1. HALCION [Suspect]
     Active Substance: TRIAZOLAM
     Dosage: UNK
     Route: 064

REACTIONS (2)
  - Hypoglycaemia neonatal [Unknown]
  - Maternal exposure timing unspecified [Unknown]
